FAERS Safety Report 6808902-3 (Version None)
Quarter: 2010Q2

REPORT INFORMATION
  Report Type: 
  Country: None (occurrence: None)
  Receive Date: 20100630
  Receipt Date: 20091029
  Transmission Date: 20101027
  Serious: No
  Sender: FDA-Public Use
  Company Number: US-PFIZER INC-2009257545

PATIENT
  Sex: Female
  Weight: 77.11 kg

DRUGS (3)
  1. ALPRAZOLAM [Suspect]
     Indication: ANXIETY
     Dosage: 0.5 MG, 1X/DAY
  2. ALPRAZOLAM [Suspect]
     Indication: SLEEP DISORDER
  3. ALPRAZOLAM [Suspect]
     Indication: STRESS

REACTIONS (3)
  - DRUG INEFFECTIVE [None]
  - INSOMNIA [None]
  - MEDICATION ERROR [None]
